FAERS Safety Report 18552977 (Version 2)
Quarter: 2020Q4

REPORT INFORMATION
  Report Type: Spontaneous
  Country: FR (occurrence: FR)
  Receive Date: 20201127
  Receipt Date: 20201215
  Transmission Date: 20210114
  Serious: Yes (Life-Threatening, Hospitalization, Other)
  Sender: FDA-Public Use
  Company Number: FR-AUROBINDO-AUR-APL-2017-09875

PATIENT
  Age: 17 Year
  Sex: Female
  Weight: 56 kg

DRUGS (2)
  1. ALCOHOL. [Suspect]
     Active Substance: ALCOHOL
     Indication: PRODUCT USED FOR UNKNOWN INDICATION
     Dosage: 30 GRAM
     Route: 065
  2. PARACETAMOL [Suspect]
     Active Substance: ACETAMINOPHEN
     Indication: PRODUCT USED FOR UNKNOWN INDICATION
     Dosage: 19 GRAM
     Route: 065

REACTIONS (4)
  - Acute kidney injury [Recovering/Resolving]
  - Acute hepatic failure [Recovering/Resolving]
  - Overdose [Unknown]
  - Renal tubular necrosis [Recovering/Resolving]
